FAERS Safety Report 21492079 (Version 5)
Quarter: 2022Q4

REPORT INFORMATION
  Report Type: Report from Study
  Country: GB (occurrence: GB)
  Receive Date: 20221021
  Receipt Date: 20221219
  Transmission Date: 20230113
  Serious: Yes (Hospitalization)
  Sender: FDA-Public Use
  Company Number: GB-NOVARTISPH-NVSC2022GB231359

PATIENT
  Age: 4 Year
  Sex: Male
  Weight: 20.2 kg

DRUGS (6)
  1. CRIZANLIZUMAB [Suspect]
     Active Substance: CRIZANLIZUMAB
     Indication: Sickle cell anaemia with crisis
     Dosage: 166 MG
     Route: 042
     Dates: start: 20220905, end: 20221012
  2. HYDROXYUREA [Concomitant]
     Active Substance: HYDROXYUREA
     Indication: General physical condition
     Dosage: UNK
     Route: 065
     Dates: start: 20220514
  3. PENICILLIN V [Concomitant]
     Active Substance: PENICILLIN V
     Indication: General physical condition
     Dosage: UNK
     Route: 065
     Dates: start: 20190802
  4. FOLIC ACID [Concomitant]
     Active Substance: FOLIC ACID
     Indication: General physical condition
     Dosage: UNK
     Route: 065
     Dates: start: 20220204
  5. ACETAMINOPHEN [Concomitant]
     Active Substance: ACETAMINOPHEN
     Indication: Viral upper respiratory tract infection
     Dosage: UNK
     Route: 065
     Dates: start: 20221010, end: 20221010
  6. IBUPROFEN [Concomitant]
     Active Substance: IBUPROFEN
     Indication: Viral upper respiratory tract infection
     Dosage: UNK
     Route: 065
     Dates: start: 20221010, end: 20221010

REACTIONS (1)
  - Back pain [Recovered/Resolved]

NARRATIVE: CASE EVENT DATE: 20221012
